FAERS Safety Report 21178907 (Version 1)
Quarter: 2022Q3

REPORT INFORMATION
  Report Type: Report from Study
  Country: CA (occurrence: CA)
  Receive Date: 20220805
  Receipt Date: 20220805
  Transmission Date: 20221026
  Serious: Yes (Other)
  Sender: FDA-Public Use
  Company Number: CA-PFIZER INC-202201029306

PATIENT
  Age: 40 Year
  Sex: Female

DRUGS (6)
  1. HYDROCORTISONE [Suspect]
     Active Substance: HYDROCORTISONE
     Indication: Inflammation
     Route: 065
  2. ERGOCALCIFEROL [Concomitant]
     Active Substance: ERGOCALCIFEROL
     Route: 065
  3. HYDROXYZINE [Concomitant]
     Active Substance: HYDROXYZINE HYDROCHLORIDE
     Indication: Chronic spontaneous urticaria
     Dosage: 1 DF, 2X/DAY
     Route: 048
  4. IRON [Concomitant]
     Active Substance: IRON
     Route: 065
  5. LANSOPRAZOLE [Concomitant]
     Active Substance: LANSOPRAZOLE
     Indication: Congenital multiplex arthrogryposis
     Route: 065
  6. ROSIVER [Concomitant]
     Route: 065

REACTIONS (13)
  - Angioedema [Unknown]
  - Asthma [Unknown]
  - Cough [Unknown]
  - Idiopathic urticaria [Unknown]
  - Nasal congestion [Unknown]
  - Oedema [Unknown]
  - Peripheral swelling [Unknown]
  - Pruritus [Unknown]
  - Rhinitis [Unknown]
  - Skin disorder [Unknown]
  - Sleep disorder [Unknown]
  - Swelling face [Unknown]
  - Wheezing [Unknown]
